FAERS Safety Report 9282522 (Version 1)
Quarter: 2013Q2

REPORT INFORMATION
  Report Type: Spontaneous
  Country: FR (occurrence: FR)
  Receive Date: 20130510
  Receipt Date: 20130510
  Transmission Date: 20140414
  Serious: Yes (Life-Threatening, Hospitalization)
  Sender: FDA-Public Use
  Company Number: FR-PFIZER INC-K200800783

PATIENT
  Age: 84 Year
  Sex: Male

DRUGS (10)
  1. INIPOMP [Suspect]
     Indication: PROPHYLAXIS
     Dosage: 20 MG, 1X/DAY
     Route: 048
  2. ALTACE [Suspect]
     Indication: ISCHAEMIC CARDIOMYOPATHY
     Dosage: 1.25 MG, 1X/DAY
     Route: 048
     Dates: start: 20080320, end: 20080412
  3. METHOTREXATE SODIUM [Suspect]
     Indication: RHEUMATOID ARTHRITIS
     Dosage: 15 MG, WEEKLY
     Route: 048
     Dates: start: 2004, end: 20080412
  4. KARDEGIC [Suspect]
     Indication: PROPHYLAXIS
     Dosage: 75 MG, 1X/DAY
     Route: 048
  5. KARDEGIC [Suspect]
     Indication: MYOCARDIAL ISCHAEMIA
  6. CORTANCYL [Concomitant]
     Indication: RHEUMATOID ARTHRITIS
     Dosage: 3 MG, UNK
     Route: 048
  7. LASILIX [Concomitant]
     Indication: ISCHAEMIC CARDIOMYOPATHY
     Dosage: 20 MG, UNK
     Route: 048
  8. CARDENSIEL [Concomitant]
     Indication: ISCHAEMIC CARDIOMYOPATHY
     Dosage: 25 MG, UNK
     Route: 048
     Dates: start: 20080331
  9. ATHYMIL [Concomitant]
     Indication: DEPRESSION
     Dosage: 30 MG, UNK
     Route: 048
     Dates: end: 20080412
  10. DEROXAT [Concomitant]
     Indication: DEPRESSION
     Dosage: 20 MG, UNK
     Route: 048

REACTIONS (11)
  - Sepsis [Recovered/Resolved]
  - Stevens-Johnson syndrome [Recovered/Resolved]
  - Folate deficiency [Recovered/Resolved]
  - Pancytopenia [Recovered/Resolved]
  - Malnutrition [Recovered/Resolved]
  - Purpura [Recovered/Resolved]
  - Blood albumin decreased [Unknown]
  - Biopsy bone marrow abnormal [Unknown]
  - Dermatitis bullous [Recovered/Resolved]
  - Pyrexia [Recovered/Resolved]
  - Mouth ulceration [Recovered/Resolved]
